FAERS Safety Report 7281892-8 (Version None)
Quarter: 2011Q1

REPORT INFORMATION
  Report Type: 
  Country: None (occurrence: None)
  Receive Date: 20110128
  Receipt Date: 20101231
  Transmission Date: 20110831
  Serious: Yes (Death)
  Sender: FDA-Public Use
  Company Number: AUR-APL-2011-00048

PATIENT
  Age: 69 Year
  Sex: Female

DRUGS (5)
  1. CARVEDILOL [Suspect]
  2. ALPRAZOLAM [Suspect]
  3. DILTIAZEM [Suspect]
  4. LISINOPRIL [Suspect]
  5. FUROSEMIDE [Suspect]

REACTIONS (4)
  - TOXICITY TO VARIOUS AGENTS [None]
  - COMPLETED SUICIDE [None]
  - INTENTIONAL DRUG MISUSE [None]
  - CARDIOACTIVE DRUG LEVEL INCREASED [None]
